FAERS Safety Report 9999250 (Version 3)
Quarter: 2014Q1

REPORT INFORMATION
  Report Type: Spontaneous
  Country: US (occurrence: US)
  Receive Date: 20140312
  Receipt Date: 20140324
  Transmission Date: 20141002
  Serious: Yes (Other)
  Sender: FDA-Public Use
  Company Number: US-AMGEN-USASP2014008791

PATIENT
  Age: 52 Year
  Sex: Female

DRUGS (2)
  1. ENBREL [Suspect]
     Indication: PUSTULAR PSORIASIS
     Dosage: 50 MG, QWK
     Route: 065
     Dates: start: 201308, end: 201311
  2. ENBREL [Suspect]
     Indication: PSORIATIC ARTHROPATHY

REACTIONS (20)
  - Myelodysplastic syndrome [Not Recovered/Not Resolved]
  - Activities of daily living impaired [Recovered/Resolved]
  - Tooth abscess [Not Recovered/Not Resolved]
  - Musculoskeletal pain [Recovered/Resolved]
  - Swelling [Not Recovered/Not Resolved]
  - Epistaxis [Not Recovered/Not Resolved]
  - Headache [Not Recovered/Not Resolved]
  - Visual impairment [Not Recovered/Not Resolved]
  - Influenza like illness [Recovered/Resolved]
  - Red blood cell macrocytes present [Unknown]
  - White blood cell count decreased [Unknown]
  - Vomiting [Recovered/Resolved]
  - Somnolence [Recovered/Resolved]
  - Pain [Not Recovered/Not Resolved]
  - Crying [Not Recovered/Not Resolved]
  - Psoriasis [Not Recovered/Not Resolved]
  - H1N1 influenza [Recovered/Resolved]
  - Sinusitis [Not Recovered/Not Resolved]
  - Anaemia [Unknown]
  - Nasopharyngitis [Recovered/Resolved]
